FAERS Safety Report 4936798-3 (Version None)
Quarter: 2006Q1

REPORT INFORMATION
  Report Type: 
  Country: None (occurrence: None)
  Receive Date: 20060307
  Receipt Date: 20050211
  Transmission Date: 20060701
  Serious: Yes (Hospitalization)
  Sender: FDA-Public Use
  Company Number: US-MERCK-0502USA01601

PATIENT
  Age: 55 Year
  Sex: Male
  Weight: 112 kg

DRUGS (2)
  1. VIOXX [Suspect]
     Indication: TEMPOROMANDIBULAR JOINT SYNDROME
     Route: 048
     Dates: start: 20000515, end: 20020301
  2. PREVACID [Concomitant]
     Route: 048

REACTIONS (11)
  - ACUTE MYOCARDIAL INFARCTION [None]
  - ANGINA UNSTABLE [None]
  - ATRIAL FIBRILLATION [None]
  - BENIGN PROSTATIC HYPERPLASIA [None]
  - CORONARY ARTERY DISEASE [None]
  - DYSLIPIDAEMIA [None]
  - LUNG DISORDER [None]
  - MUSCULOSKELETAL CHEST PAIN [None]
  - MYOCARDIAL INFARCTION [None]
  - NEURALGIA [None]
  - WEIGHT INCREASED [None]
